FAERS Safety Report 6794025-9 (Version None)
Quarter: 2010Q2

REPORT INFORMATION
  Report Type: 
  Country: None (occurrence: None)
  Receive Date: 20100624
  Receipt Date: 20070503
  Transmission Date: 20101027
  Serious: No
  Sender: FDA-Public Use
  Company Number: US-PFIZER INC-ENC200700063

PATIENT
  Age: 56 Year
  Sex: Male

DRUGS (16)
  1. ARGATROBAN [Suspect]
     Indication: HEPARIN-INDUCED THROMBOCYTOPENIA
     Dosage: 2 MCG/KG/MIN,FREQUENCY:  CONTINUOUS
     Route: 042
     Dates: start: 20070430, end: 20070515
  2. DEXAMETHASONE [Concomitant]
  3. PARACETAMOL [Concomitant]
  4. ESOMEPRAZOLE MAGNESIUM [Concomitant]
  5. HYDRALAZINE HCL [Concomitant]
  6. IBUPROFEN [Concomitant]
  7. INSULIN [Concomitant]
  8. LEVOFLOXACIN [Concomitant]
  9. METOPROLOL [Concomitant]
  10. ONDANSETRON [Concomitant]
  11. OXYCODONE HYDROCHLORIDE, OXYCODONE TEREPHTHALATE, PARACETAMOL [Concomitant]
  12. PHENYTOIN [Concomitant]
  13. SODIUM CHLORIDE [Concomitant]
  14. VANCOMYCIN [Concomitant]
  15. ZOLPIDEM TARTRATE [Concomitant]
  16. POTASSIUM [Concomitant]

REACTIONS (3)
  - HAEMATOCRIT DECREASED [None]
  - HAEMATURIA [None]
  - HAEMOGLOBIN DECREASED [None]
